FAERS Safety Report 12773299 (Version 1)
Quarter: 2016Q3

REPORT INFORMATION
  Report Type: Spontaneous
  Country: US (occurrence: US)
  Receive Date: 20160922
  Receipt Date: 20160922
  Transmission Date: 20161109
  Serious: No
  Sender: FDA-Public Use
  Company Number: US-BANPHARM-20154347

PATIENT
  Age: 55 Year
  Sex: Female
  Weight: 82.55 kg

DRUGS (1)
  1. ZYRTEC [Suspect]
     Active Substance: CETIRIZINE HYDROCHLORIDE
     Dosage: 1 DF, QD,
     Route: 048

REACTIONS (2)
  - Poor quality drug administered [Unknown]
  - Product quality issue [Unknown]
